FAERS Safety Report 10387861 (Version 2)
Quarter: 2014Q4

REPORT INFORMATION
  Report Type: Spontaneous
  Country: US (occurrence: US)
  Receive Date: 20140815
  Receipt Date: 20141020
  Transmission Date: 20150528
  Serious: Yes (Other)
  Sender: FDA-Public Use
  Company Number: US-BAYER-2014-121975

PATIENT
  Age: 38 Year
  Sex: Female

DRUGS (4)
  1. PRILOSEC [Concomitant]
     Active Substance: OMEPRAZOLE MAGNESIUM
  2. IBUPROFEN. [Concomitant]
     Active Substance: IBUPROFEN
  3. DEPO-PROVERA [Concomitant]
     Active Substance: MEDROXYPROGESTERONE ACETATE
     Indication: CONTRACEPTION
  4. MIRENA [Suspect]
     Active Substance: LEVONORGESTREL
     Indication: CONTRACEPTION
     Dosage: 20 MCG/24HR, CONT
     Route: 015
     Dates: start: 20120706, end: 20120809

REACTIONS (14)
  - Uterine perforation [None]
  - Injury [None]
  - Emotional distress [None]
  - Pelvic pain [None]
  - Device dislocation [None]
  - Genital haemorrhage [None]
  - Internal injury [None]
  - Pain [None]
  - Depressed mood [None]
  - Depression [None]
  - Anxiety [None]
  - Fear [None]
  - Medical device discomfort [None]
  - Abdominal pain [None]

NARRATIVE: CASE EVENT DATE: 201208
